APPROVED DRUG PRODUCT: TRYSUL
Active Ingredient: TRIPLE SULFA (SULFABENZAMIDE;SULFACETAMIDE;SULFATHIAZOLE)
Strength: 3.7%;2.86%;3.42%
Dosage Form/Route: CREAM;VAGINAL
Application: A087887 | Product #001
Applicant: SAVAGE LABORATORIES INC DIV ALTANA INC
Approved: Jul 23, 1982 | RLD: No | RS: No | Type: DISCN